FAERS Safety Report 5877297-4 (Version None)
Quarter: 2008Q3

REPORT INFORMATION
  Report Type: 
  Country: None (occurrence: None)
  Receive Date: 20080910
  Receipt Date: 20080903
  Transmission Date: 20090109
  Serious: Yes (Life-Threatening, Hospitalization)
  Sender: FDA-Public Use
  Company Number: JP-MERCK-0808USA02872

PATIENT
  Age: 67 Year
  Sex: Male
  Weight: 55 kg

DRUGS (9)
  1. HYZAAR [Suspect]
     Indication: HYPERTENSION
     Route: 048
  2. LASIX [Suspect]
     Indication: OEDEMA
     Route: 048
     Dates: start: 20080626
  3. AMARYL [Concomitant]
     Indication: DIABETES MELLITUS
     Route: 048
  4. GLYCORAN [Concomitant]
     Indication: DIABETES MELLITUS
     Route: 048
  5. BLADDERON [Concomitant]
     Indication: CYSTITIS
     Route: 048
  6. PLAVIX [Concomitant]
     Indication: CEREBRAL INFARCTION
     Route: 048
  7. AMLODIPINE BESYLATE [Concomitant]
     Route: 048
  8. CARDENALIN [Concomitant]
     Route: 048
  9. CRESTOR [Concomitant]
     Route: 048

REACTIONS (4)
  - ANOREXIA [None]
  - HYPOGLYCAEMIA [None]
  - HYPOKALAEMIA [None]
  - RENAL IMPAIRMENT [None]
